FAERS Safety Report 4837699-1 (Version None)
Quarter: 2005Q4

REPORT INFORMATION
  Report Type: 
  Country: None (occurrence: None)
  Receive Date: 20051128
  Receipt Date: 20050824
  Transmission Date: 20060501
  Serious: Yes (Hospitalization, Other)
  Sender: FDA-Public Use
  Company Number: US-MERCK-0508USA04234

PATIENT
  Age: 82 Year
  Sex: Female
  Weight: 52 kg

DRUGS (19)
  1. VIOXX [Suspect]
     Indication: OSTEOARTHRITIS
     Route: 048
     Dates: start: 19991201, end: 20041001
  2. VIOXX [Suspect]
     Route: 048
     Dates: start: 19990101, end: 19991215
  3. VIOXX [Suspect]
     Indication: ARTHRALGIA
     Route: 048
     Dates: start: 19991201, end: 20041001
  4. VIOXX [Suspect]
     Route: 048
     Dates: start: 19990101, end: 19991215
  5. NORVASC [Concomitant]
     Indication: BLOOD PRESSURE
     Route: 065
     Dates: start: 20000101
  6. IMDUR [Concomitant]
     Indication: BLOOD PRESSURE
     Route: 065
     Dates: start: 20000101
  7. PRILOSEC [Concomitant]
     Indication: STOMACH DISCOMFORT
     Route: 065
  8. TERAZOL 7 [Concomitant]
     Route: 065
  9. VITAPLEX PLUS [Concomitant]
     Indication: ROUTINE HEALTH MAINTENANCE
     Route: 065
  10. ZOLOFT [Concomitant]
     Route: 065
  11. MECLIZINE [Concomitant]
     Indication: NAUSEA
     Route: 065
  12. CELEXA [Concomitant]
     Indication: DEPRESSION
     Route: 065
  13. DITROPAN [Concomitant]
     Indication: BLADDER SPASM
     Route: 065
  14. PAXIL CR [Concomitant]
     Indication: DEPRESSION
     Route: 065
  15. ZITHROMAX [Concomitant]
     Route: 065
  16. FLOREDIL [Concomitant]
     Route: 065
  17. VITAMIN B COMPLEX [Concomitant]
     Route: 065
  18. LONOX [Concomitant]
     Indication: GASTROINTESTINAL HYPERMOTILITY
     Route: 065
  19. ASPIRIN [Concomitant]
     Indication: CEREBROVASCULAR ACCIDENT PROPHYLAXIS
     Route: 048
     Dates: start: 20000101

REACTIONS (11)
  - ADVERSE EVENT [None]
  - BLOOD CHOLESTEROL INCREASED [None]
  - CEREBROVASCULAR ACCIDENT [None]
  - CHRONIC OBSTRUCTIVE PULMONARY DISEASE [None]
  - DEMENTIA [None]
  - DYSPNOEA [None]
  - GLAUCOMA [None]
  - OEDEMA PERIPHERAL [None]
  - OSTEONECROSIS [None]
  - RETINAL ARTERY OCCLUSION [None]
  - TRANSIENT ISCHAEMIC ATTACK [None]
